FAERS Safety Report 7629489-1 (Version None)
Quarter: 2011Q3

REPORT INFORMATION
  Report Type: 
  Country: None (occurrence: None)
  Receive Date: 20110722
  Receipt Date: 20110718
  Transmission Date: 20111222
  Serious: Yes (Life-Threatening)
  Sender: FDA-Public Use
  Company Number: FR-ASTRAZENECA-2011SE43004

PATIENT
  Age: 71 Year
  Sex: Female

DRUGS (13)
  1. CIPROFLOXACIN [Concomitant]
     Route: 048
     Dates: start: 20110525, end: 20110530
  2. SIMVASTATIN [Concomitant]
     Route: 048
  3. ZESTORETIC [Suspect]
     Route: 048
  4. LANTUS [Concomitant]
     Route: 048
  5. OMEPRAZOLE [Suspect]
     Route: 048
     Dates: end: 20110530
  6. METFORMIN HCL [Suspect]
     Route: 048
  7. DIAMOX SRC [Suspect]
     Route: 048
  8. ACTOS [Suspect]
     Route: 048
     Dates: end: 20110530
  9. AUGMENTIN '125' [Concomitant]
     Route: 048
     Dates: start: 20110525, end: 20110530
  10. NEBIVOLOL HCL [Concomitant]
     Route: 048
  11. SYMBICORT [Concomitant]
     Route: 055
  12. ONGLYZA [Concomitant]
     Route: 048
  13. SPIRIVA [Concomitant]
     Route: 055

REACTIONS (4)
  - RENAL FAILURE [None]
  - DIARRHOEA [None]
  - LACTIC ACIDOSIS [None]
  - HYPERKALAEMIA [None]
